FAERS Safety Report 4843443-4 (Version None)
Quarter: 2005Q4

REPORT INFORMATION
  Report Type: 
  Country: None (occurrence: None)
  Receive Date: 20051027
  Receipt Date: 20041015
  Transmission Date: 20060501
  Serious: Yes (Disabling)
  Sender: FDA-Public Use
  Company Number: HQWYE879219OCT04

PATIENT
  Age: 78 Year
  Sex: Female

DRUGS (1)
  1. PREMARIN [Suspect]
     Dates: end: 20040101

REACTIONS (1)
  - DEMENTIA [None]
